FAERS Safety Report 14987611 (Version 1)
Quarter: 2018Q2

REPORT INFORMATION
  Report Type: Spontaneous
  Country: US (occurrence: US)
  Receive Date: 20180605
  Receipt Date: 20180605
  Transmission Date: 20180711
  Serious: No
  Sender: FDA-Public Use
  Company Number: None

PATIENT
  Age: 67 Year
  Sex: Female

DRUGS (27)
  1. VITAMIN D3 [Concomitant]
     Active Substance: CHOLECALCIFEROL
  2. LACTULOSE. [Concomitant]
     Active Substance: LACTULOSE
  3. DOCUSATE SODIUM. [Concomitant]
     Active Substance: DOCUSATE SODIUM
  4. OXYBUTYNIN. [Concomitant]
     Active Substance: OXYBUTYNIN CHLORIDE
  5. BETAMETHASONE VALERATE. [Concomitant]
     Active Substance: BETAMETHASONE VALERATE
  6. PSYLLIUM [Concomitant]
     Active Substance: PLANTAGO SEED
  7. WARFARIN [Concomitant]
     Active Substance: WARFARIN
  8. TRIAMCINOLONE ACETONIDE. [Concomitant]
     Active Substance: TRIAMCINOLONE ACETONIDE
  9. VITAMIN B12 [Concomitant]
     Active Substance: CYANOCOBALAMIN
  10. OXYBUTYNIN. [Concomitant]
     Active Substance: OXYBUTYNIN CHLORIDE
  11. FISH OIL [Concomitant]
     Active Substance: FISH OIL
  12. BACLOFEN. [Concomitant]
     Active Substance: BACLOFEN
  13. DIGOXIN. [Concomitant]
     Active Substance: DIGOXIN
  14. HYDROCORTISONE. [Concomitant]
     Active Substance: HYDROCORTISONE
  15. XARNA [Concomitant]
  16. METOPROLOL. [Concomitant]
     Active Substance: METOPROLOL
  17. AMPYRA [Suspect]
     Active Substance: DALFAMPRIDINE
     Indication: MULTIPLE SCLEROSIS
     Route: 048
     Dates: start: 201605
  18. CEPHALEXIN. [Concomitant]
     Active Substance: CEPHALEXIN
  19. MICONAZOLE. [Concomitant]
     Active Substance: MICONAZOLE
  20. CLOTRIMAZOLE. [Concomitant]
     Active Substance: CLOTRIMAZOLE
  21. LOSARTAN. [Concomitant]
     Active Substance: LOSARTAN
  22. SENNA [Concomitant]
     Active Substance: SENNA LEAF\SENNOSIDES\SENNOSIDES A AND B
  23. FOSAMAX [Concomitant]
     Active Substance: ALENDRONATE SODIUM
  24. NPH INSULIN [Concomitant]
     Active Substance: INSULIN BEEF
  25. METFORMIN [Concomitant]
     Active Substance: METFORMIN HYDROCHLORIDE
  26. VENLAFAXINE [Concomitant]
     Active Substance: VENLAFAXINE HYDROCHLORIDE
  27. MVI [Concomitant]
     Active Substance: VITAMINS

REACTIONS (2)
  - Device leakage [None]
  - Urinary tract infection [None]

NARRATIVE: CASE EVENT DATE: 20180527
